FAERS Safety Report 9290193 (Version 2)
Quarter: 2013Q4

REPORT INFORMATION
  Report Type: Spontaneous
  Country: US (occurrence: US)
  Receive Date: 20130515
  Receipt Date: 20131030
  Transmission Date: 20140711
  Serious: Yes (Other)
  Sender: FDA-Public Use
  Company Number: US-B.I. PHARMACEUTICALS,INC./RIDGEFIELD-2013-BI-13283BP

PATIENT
  Age: 90 Year
  Sex: Female
  Weight: 67.59 kg

DRUGS (8)
  1. PRADAXA [Suspect]
     Indication: ATRIAL FIBRILLATION
     Dosage: 300 MG
     Route: 048
     Dates: start: 20120131, end: 20120529
  2. ASPIRIN [Suspect]
     Dates: end: 20120202
  3. OCUVITE [Concomitant]
     Dosage: 150 MG
     Route: 048
     Dates: start: 2003
  4. METOPROLOL SUCCINATE [Concomitant]
     Dosage: 50 MG
     Route: 048
     Dates: start: 2003
  5. LISINOPRIL [Concomitant]
     Dosage: 40 MG
     Route: 048
     Dates: start: 2003
  6. FUROSEMIDE [Concomitant]
     Dosage: 40 MG
     Route: 048
     Dates: start: 2003, end: 2012
  7. LOVASTATIN [Concomitant]
     Dosage: 20 MG
     Route: 048
     Dates: start: 2003
  8. IRON [Concomitant]

REACTIONS (5)
  - Coagulopathy [Unknown]
  - Chronic gastrointestinal bleeding [Recovered/Resolved]
  - Haemorrhagic anaemia [Unknown]
  - Iron deficiency anaemia [Unknown]
  - Vaginal haemorrhage [Recovered/Resolved]
